FAERS Safety Report 20112542 (Version 1)
Quarter: 2021Q4

REPORT INFORMATION
  Report Type: Report from Study
  Country: BR (occurrence: BR)
  Receive Date: 20211125
  Receipt Date: 20211125
  Transmission Date: 20220303
  Serious: Yes (Other)
  Sender: FDA-Public Use
  Company Number: BR-JNJFOC-20211142957

PATIENT

DRUGS (8)
  1. ESKETAMINE [Suspect]
     Active Substance: ESKETAMINE
     Indication: Depression
     Dosage: MOTHER^S DOSING
     Route: 064
     Dates: start: 20210222, end: 20210422
  2. METHYLDOPA [Concomitant]
     Active Substance: METHYLDOPA
     Indication: Hypertension
     Dosage: TWICE
     Route: 064
     Dates: start: 20210622
  3. LEVOTHYROXINE [Concomitant]
     Active Substance: LEVOTHYROXINE
     Indication: Hypothyroidism
     Dosage: DAILY
     Route: 064
     Dates: start: 20191207
  4. FOLIC ACID [Concomitant]
     Active Substance: FOLIC ACID
     Indication: Supplementation therapy
     Dosage: DAILY
     Route: 064
     Dates: start: 20210618
  5. FERROUS SULFATE [Concomitant]
     Active Substance: FERROUS SULFATE
     Indication: Supplementation therapy
     Dosage: DAILY
     Route: 064
     Dates: start: 20210618
  6. ASPIRIN [Concomitant]
     Active Substance: ASPIRIN
     Indication: Supplementation therapy
     Dosage: DAILY
     Route: 064
     Dates: start: 20210618
  7. ERGOCALCIFEROL [Concomitant]
     Active Substance: ERGOCALCIFEROL
     Indication: Supplementation therapy
     Dosage: DAILY
     Route: 064
     Dates: start: 20210618
  8. SERTRALINE [Concomitant]
     Active Substance: SERTRALINE HYDROCHLORIDE
     Indication: Depression
     Route: 064
     Dates: start: 20210628

REACTIONS (2)
  - Premature baby [Unknown]
  - Foetal exposure during pregnancy [Recovered/Resolved]

NARRATIVE: CASE EVENT DATE: 20210101
